FAERS Safety Report 10207333 (Version 1)
Quarter: 2014Q2

REPORT INFORMATION
  Report Type: Spontaneous
  Country: US (occurrence: None)
  Receive Date: 20140527
  Receipt Date: 20140527
  Transmission Date: 20141212
  Serious: No
  Sender: FDA-Public Use
  Company Number: None

PATIENT
  Age: 64 Year
  Sex: Male

DRUGS (10)
  1. TEGRETOL [Suspect]
     Dosage: 42 DAYS.
     Dates: start: 20120414, end: 20120526
  2. ASPIRIN [Concomitant]
  3. CARBAMAZEPINE [Concomitant]
  4. LAMICTAL [Concomitant]
  5. METFORMIN [Concomitant]
  6. GABAPENTIN [Concomitant]
  7. LISINOPRIL [Concomitant]
  8. VITAMIN C [Concomitant]
  9. HYDROCHLOROTHIAZIDE [Concomitant]
  10. GLIPIZIDE [Concomitant]

REACTIONS (11)
  - Drug-induced liver injury [None]
  - Rash [None]
  - Pyrexia [None]
  - Chromaturia [None]
  - Asthenia [None]
  - Pain in extremity [None]
  - International normalised ratio increased [None]
  - Renal failure [None]
  - Rash erythematous [None]
  - Renal failure acute [None]
  - Gait disturbance [None]
